FAERS Safety Report 17691932 (Version 2)
Quarter: 2020Q4

REPORT INFORMATION
  Report Type: Report from Study
  Country: US (occurrence: US)
  Receive Date: 20200422
  Receipt Date: 20201113
  Transmission Date: 20210113
  Serious: No
  Sender: FDA-Public Use
  Company Number: US-SA-2020SA102211

PATIENT

DRUGS (14)
  1. PREDNISONE. [Concomitant]
     Active Substance: PREDNISONE
  2. FAMOTIDINE. [Concomitant]
     Active Substance: FAMOTIDINE
     Indication: GASTROOESOPHAGEAL REFLUX DISEASE
  3. DUPILUMAB [Suspect]
     Active Substance: DUPILUMAB
     Indication: ASTHMA
     Dosage: 600 MG, 1X
     Route: 058
     Dates: start: 2019, end: 2019
  4. LEVOTHYROXINE. [Concomitant]
     Active Substance: LEVOTHYROXINE
  5. DULOXETINE. [Concomitant]
     Active Substance: DULOXETINE
     Indication: IRRITABLE BOWEL SYNDROME
  6. NUCALA [Concomitant]
     Active Substance: MEPOLIZUMAB
  7. MYRBETRIQ [Concomitant]
     Active Substance: MIRABEGRON
     Indication: HYPERTONIC BLADDER
  8. ZOLPIDEM [Concomitant]
     Active Substance: ZOLPIDEM TARTRATE
     Indication: SLEEP DISORDER
  9. MULTIVITAMINS [VITAMINS NOS] [Concomitant]
     Active Substance: VITAMINS
  10. DUPILUMAB [Suspect]
     Active Substance: DUPILUMAB
     Dosage: 300 MG, QOW
     Route: 058
  11. NEXIUM I.V. [Concomitant]
     Active Substance: ESOMEPRAZOLE SODIUM
     Indication: GASTROOESOPHAGEAL REFLUX DISEASE
  12. MELOXICAM. [Concomitant]
     Active Substance: MELOXICAM
     Indication: ALLERGIC SINUSITIS
  13. BENTYL [Concomitant]
     Active Substance: DICYCLOMINE HYDROCHLORIDE
     Indication: IRRITABLE BOWEL SYNDROME
     Dosage: UNK UNK, BID
  14. SYMBICORT [Concomitant]
     Active Substance: BUDESONIDE\FORMOTEROL FUMARATE DIHYDRATE

REACTIONS (5)
  - Aphonia [Unknown]
  - Product use issue [Unknown]
  - Paranasal sinus hypersecretion [Unknown]
  - Asthma [Unknown]
  - Sinus disorder [Unknown]

NARRATIVE: CASE EVENT DATE: 2019
